FAERS Safety Report 14520209 (Version 1)
Quarter: 2018Q1

REPORT INFORMATION
  Report Type: Spontaneous
  Country: BR (occurrence: BR)
  Receive Date: 20180212
  Receipt Date: 20180212
  Transmission Date: 20180509
  Serious: Yes (Other)
  Sender: FDA-Public Use
  Company Number: BR-BIOMARINAP-BR-2018-117031

PATIENT
  Age: 19 Year
  Sex: Male
  Weight: 68 kg

DRUGS (2)
  1. ALDURAZYME [Suspect]
     Active Substance: LARONIDASE
     Indication: MUCOPOLYSACCHARIDOSIS
     Dosage: UNK
     Route: 041
     Dates: start: 20120701, end: 201710
  2. ALDURAZYME [Suspect]
     Active Substance: LARONIDASE
     Dosage: UNK, QOW
     Route: 041
     Dates: start: 201710, end: 20180116

REACTIONS (10)
  - Bone disorder [Unknown]
  - Aortic valve thickening [Unknown]
  - Pineal gland cyst [Unknown]
  - Nuclear magnetic resonance imaging abnormal [Unknown]
  - Scoliosis [Unknown]
  - Spinal flattening [Unknown]
  - Rhinitis [Unknown]
  - Mitral valve thickening [Unknown]
  - Intervertebral disc protrusion [Unknown]
  - Joint range of motion decreased [Unknown]
